FAERS Safety Report 8735516 (Version 3)
Quarter: 2012Q4

REPORT INFORMATION
  Report Type: 
  Country: MX (occurrence: MX)
  Receive Date: 20120822
  Receipt Date: 20121123
  Transmission Date: 20130627
  Serious: Yes (Hospitalization, Other)
  Sender: FDA-Public Use
  Company Number: PHHY2012MX071899

PATIENT
  Age: 85 Year
  Sex: Male

DRUGS (6)
  1. STALEVO [Suspect]
     Indication: PARKINSON^S DISEASE
     Dosage: 1 DF (200/50/12.5 mg) per day
     Route: 048
     Dates: start: 20120726
  2. LINAGLIPTIN [Concomitant]
     Dosage: 1 DF, QD
  3. NIFEDIPINE [Concomitant]
     Dosage: 1 DF, UNK
     Route: 048
  4. PRAVASTATIN [Concomitant]
     Indication: BLOOD CHOLESTEROL INCREASED
     Dosage: 2 DF, UNK
     Route: 048
  5. METFORMIN [Concomitant]
     Dosage: 3 DF, UNK
     Route: 048
  6. DIGENOR [Concomitant]
     Dosage: 3 DF, QD
     Route: 048

REACTIONS (7)
  - Pyuria [Not Recovered/Not Resolved]
  - Feeling abnormal [Not Recovered/Not Resolved]
  - Blood glucose increased [Recovered/Resolved]
  - Dysuria [Not Recovered/Not Resolved]
  - Vision blurred [Unknown]
  - Abdominal pain upper [Not Recovered/Not Resolved]
  - Prostatic disorder [Unknown]
